FAERS Safety Report 4725496-7 (Version None)
Quarter: 2005Q3

REPORT INFORMATION
  Report Type: 
  Country: None (occurrence: None)
  Receive Date: 20050727
  Receipt Date: 20050715
  Transmission Date: 20060218
  Serious: Yes (Hospitalization)
  Sender: FDA-Public Use
  Company Number: US-JNJFOC-20040103842

PATIENT
  Sex: Female
  Weight: 61.69 kg

DRUGS (9)
  1. INFLIXIMAB [Suspect]
     Route: 042
  2. INFLIXIMAB [Suspect]
     Route: 042
  3. INFLIXIMAB [Suspect]
     Indication: CROHN'S DISEASE
     Route: 042
  4. MESALAMINE [Concomitant]
  5. ANTIBIOTICS [Concomitant]
  6. BUDESONIDE [Concomitant]
  7. PREDNISONE [Concomitant]
  8. NARCOTIC ANALGESICS [Concomitant]
  9. ANTIDEPRESSANTS [Concomitant]

REACTIONS (1)
  - FEMALE GENITAL-DIGESTIVE TRACT FISTULA [None]
